FAERS Safety Report 12709731 (Version 1)
Quarter: 2016Q3

REPORT INFORMATION
  Report Type: Spontaneous
  Country: None (occurrence: None)
  Receive Date: 20160901
  Receipt Date: 20160901
  Transmission Date: 20161109
  Serious: No
  Sender: FDA-Public Use
  Company Number: None

PATIENT
  Age: 55 Year
  Sex: Female
  Weight: 68.04 kg

DRUGS (1)
  1. ERYTHROMYCIN. [Suspect]
     Active Substance: ERYTHROMYCIN
     Indication: INFECTION
     Route: 047
     Dates: start: 20160819, end: 20160820

REACTIONS (2)
  - Eyelid oedema [None]
  - Erythema of eyelid [None]

NARRATIVE: CASE EVENT DATE: 20160822
